FAERS Safety Report 15714293 (Version 1)
Quarter: 2018Q4

REPORT INFORMATION
  Report Type: Spontaneous
  Country: US (occurrence: US)
  Receive Date: 20181212
  Receipt Date: 20181212
  Transmission Date: 20190205
  Serious: No
  Sender: FDA-Public Use
  Company Number: US-UNITED THERAPEUTICS-UNT-2018-020468

PATIENT
  Age: 51 Year
  Sex: Female
  Weight: 79.82 kg

DRUGS (4)
  1. TRACLEER [Concomitant]
     Active Substance: BOSENTAN
     Indication: PRODUCT USED FOR UNKNOWN INDICATION
     Route: 065
  2. UPTRAVI [Suspect]
     Active Substance: SELEXIPAG
     Dosage: 800 ?G, UNK
     Route: 065
     Dates: start: 20181208
  3. TYVASO [Suspect]
     Active Substance: TREPROSTINIL
     Indication: PULMONARY ARTERIAL HYPERTENSION
     Dosage: 18-54 MICROGRAMS, QID
     Dates: start: 20140123
  4. UPTRAVI [Suspect]
     Active Substance: SELEXIPAG
     Indication: PRODUCT USED FOR UNKNOWN INDICATION
     Dosage: 1000 ?G, UNK
     Route: 065

REACTIONS (4)
  - Palpitations [Unknown]
  - Flushing [Unknown]
  - Pyrexia [Unknown]
  - Headache [Unknown]

NARRATIVE: CASE EVENT DATE: 20181208
